FAERS Safety Report 7624240-3 (Version None)
Quarter: 2011Q3

REPORT INFORMATION
  Report Type: 
  Country: None (occurrence: None)
  Receive Date: 20110720
  Receipt Date: 20110711
  Transmission Date: 20111222
  Serious: Yes (Hospitalization, Other)
  Sender: FDA-Public Use
  Company Number: US-ASTRAZENECA-2011SE41750

PATIENT
  Age: 43 Year
  Sex: Male

DRUGS (1)
  1. NEXIUM [Suspect]
     Route: 048

REACTIONS (7)
  - DYSPEPSIA [None]
  - GASTRIC ULCER HAEMORRHAGE [None]
  - HEPATITIS [None]
  - DIZZINESS [None]
  - MULTIPLE SCLEROSIS [None]
  - ASTHENIA [None]
  - DRUG DOSE OMISSION [None]
